FAERS Safety Report 19627511 (Version 1)
Quarter: 2021Q3

REPORT INFORMATION
  Report Type: Spontaneous
  Country: DE (occurrence: DE)
  Receive Date: 20210729
  Receipt Date: 20210729
  Transmission Date: 20211014
  Serious: Yes (Other)
  Sender: FDA-Public Use
  Company Number: DE-TEVA-2021-DE-1936457

PATIENT
  Age: 47 Year
  Sex: Female

DRUGS (9)
  1. BACLOFEN RATIOPHARM 10 MG TABLETTEN [Suspect]
     Active Substance: BACLOFEN
     Indication: MULTIPLE SCLEROSIS
     Dosage: 10 MILLIGRAM DAILY;
     Route: 048
     Dates: start: 202106
  2. FOSTER 200/6 MICROGRAM [Concomitant]
     Indication: ASTHMA
     Dosage: LAST INTAKE 6 WEEKS AGO
  3. BALDRIAN [Concomitant]
     Active Substance: VALERIAN
     Indication: SLEEP DISORDER
  4. BACLOFEN RATIOPHARM 10 MG TABLETTEN [Suspect]
     Active Substance: BACLOFEN
     Dosage: 25 MILLIGRAM DAILY; 1.5 TABLETS IN THE MORNING + 1 TABLET IN AFTERNOON LAST WEEKEND
     Route: 048
  5. VITAMIN B12 [Concomitant]
     Active Substance: CYANOCOBALAMIN
  6. COPAXONE [Concomitant]
     Active Substance: GLATIRAMER ACETATE
     Route: 065
  7. BACLOFEN RATIOPHARM 10 MG TABLETTEN [Suspect]
     Active Substance: BACLOFEN
     Dosage: 20 MILLIGRAM DAILY;
     Route: 048
  8. VITAMIN D3 [Concomitant]
     Active Substance: CHOLECALCIFEROL
  9. BACLOFEN RATIOPHARM 10 MG TABLETTEN [Suspect]
     Active Substance: BACLOFEN
     Dosage: 15 MILLIGRAM DAILY;
     Route: 048

REACTIONS (4)
  - Drug titration [Unknown]
  - Visual field defect [Not Recovered/Not Resolved]
  - Multiple sclerosis relapse [Not Recovered/Not Resolved]
  - Visual impairment [Not Recovered/Not Resolved]

NARRATIVE: CASE EVENT DATE: 202107
